FAERS Safety Report 7288891-0 (Version None)
Quarter: 2011Q1

REPORT INFORMATION
  Report Type: 
  Country: None (occurrence: None)
  Receive Date: 20110211
  Receipt Date: 20110207
  Transmission Date: 20110831
  Serious: Yes (Hospitalization, Other)
  Sender: FDA-Public Use
  Company Number: GB-PFIZER INC-2008036693

PATIENT
  Age: 72 Year
  Sex: Male

DRUGS (2)
  1. DOXAZOSIN MESILATE [Suspect]
     Indication: BENIGN PROSTATIC HYPERPLASIA
  2. DOXAZOSIN MESILATE [Suspect]
     Indication: HYPERTENSION
     Dosage: 4 MG, 1X/DAY
     Route: 048
     Dates: start: 20020101

REACTIONS (1)
  - FLOPPY IRIS SYNDROME [None]
